FAERS Safety Report 9855216 (Version 3)
Quarter: 2014Q4

REPORT INFORMATION
  Report Type: Spontaneous
  Country: US (occurrence: US)
  Receive Date: 20140130
  Receipt Date: 20141216
  Transmission Date: 20150529
  Serious: Yes (Death, Hospitalization, Disabling, Other)
  Sender: FDA-Public Use
  Company Number: US-009507513-1401USA012843

PATIENT
  Sex: Female
  Weight: 86.17 kg

DRUGS (1)
  1. JANUVIA [Suspect]
     Active Substance: SITAGLIPTIN PHOSPHATE
     Indication: TYPE 2 DIABETES MELLITUS
     Dosage: 100 MG, UNK
     Route: 048
     Dates: start: 20071019, end: 20080807

REACTIONS (19)
  - Nephrolithiasis [Unknown]
  - Pulmonary granuloma [Unknown]
  - Diverticulum [Unknown]
  - Pleural effusion [Unknown]
  - Large intestinal obstruction [Unknown]
  - Blood glucose decreased [Unknown]
  - Pleural effusion [Unknown]
  - Pancreatitis [Unknown]
  - Inguinal hernia [Unknown]
  - Impaired gastric emptying [Unknown]
  - Pancreatic carcinoma metastatic [Fatal]
  - Pancreatectomy [Unknown]
  - Pancreatic abscess [Unknown]
  - Sinus congestion [Unknown]
  - Positron emission tomogram abnormal [Unknown]
  - Pericardial effusion [Unknown]
  - Irritable bowel syndrome [Unknown]
  - Colectomy [Unknown]
  - Splenic infarction [Unknown]

NARRATIVE: CASE EVENT DATE: 20080805
